FAERS Safety Report 24732770 (Version 3)
Quarter: 2025Q1

REPORT INFORMATION
  Report Type: Report from Study
  Country: US (occurrence: US)
  Receive Date: 20241213
  Receipt Date: 20250210
  Transmission Date: 20250409
  Serious: No
  Sender: JOHNSON AND JOHNSON
  Company Number: US-JNJFOC-20241136643

PATIENT
  Age: 56 Year
  Sex: Female

DRUGS (12)
  1. STELARA [Suspect]
     Active Substance: USTEKINUMAB
     Indication: Crohn^s disease
     Dosage: STRENGTH: UNKNOWN
     Route: 058
  2. STELARA [Suspect]
     Active Substance: USTEKINUMAB
  3. STELARA [Suspect]
     Active Substance: USTEKINUMAB
     Indication: Crohn^s disease
     Route: 058
  4. STELARA [Suspect]
     Active Substance: USTEKINUMAB
  5. ESTRADIOL [Concomitant]
     Active Substance: ESTRADIOL
  6. BUPROPION [Concomitant]
     Active Substance: BUPROPION
  7. PROPRANOLOL [Concomitant]
     Active Substance: PROPRANOLOL HYDROCHLORIDE
  8. SULFASALAZINE DELAYED-RELEASE [Concomitant]
     Active Substance: SULFASALAZINE
  9. CLOBETASOL [Concomitant]
     Active Substance: CLOBETASOL
  10. ALPRAZOLAM [Concomitant]
     Active Substance: ALPRAZOLAM
  11. HYDROCORT [HYDROCORTISONE] [Concomitant]
  12. FOLIC ACID [Concomitant]
     Active Substance: FOLIC ACID

REACTIONS (6)
  - Herpes zoster [Not Recovered/Not Resolved]
  - Device use error [Unknown]
  - Device issue [Unknown]
  - Product dose omission issue [Unknown]
  - Product label issue [Unknown]
  - Device defective [Unknown]

NARRATIVE: CASE EVENT DATE: 20240101
